FAERS Safety Report 9147457 (Version 2)
Quarter: 2013Q2

REPORT INFORMATION
  Report Type: Spontaneous
  Country: US (occurrence: US)
  Receive Date: 20130307
  Receipt Date: 20130520
  Transmission Date: 20140414
  Serious: No
  Sender: FDA-Public Use
  Company Number: US-PFIZER INC-2013079301

PATIENT
  Age: 68 Year
  Sex: Female
  Weight: 98.87 kg

DRUGS (3)
  1. LYRICA [Suspect]
     Indication: PAIN
     Dosage: 50 MG, UNK
     Dates: start: 201302
  2. LYRICA [Suspect]
     Dosage: 300 MG, DAILY
     Dates: start: 2013
  3. LYRICA [Suspect]
     Dosage: 450 MG, DAILY
     Dates: start: 2013

REACTIONS (1)
  - Drug ineffective [Unknown]
